FAERS Safety Report 21864713 (Version 1)
Quarter: 2023Q1

REPORT INFORMATION
  Report Type: Spontaneous
  Country: US (occurrence: US)
  Receive Date: 20230116
  Receipt Date: 20230116
  Transmission Date: 20230417
  Serious: No
  Sender: FDA-Public Use
  Company Number: US-drreddys-SPO/USA/22/0158389

PATIENT
  Age: 61 Year
  Sex: Male

DRUGS (1)
  1. LENALIDOMIDE [Suspect]
     Active Substance: LENALIDOMIDE
     Indication: Plasma cell myeloma
     Dosage: FOR 14 DAYS FOLLOWED BY 7 DAYS OFF OF A 21 DAY CYCLE
     Dates: start: 20220922

REACTIONS (2)
  - White blood cell count decreased [Recovered/Resolved]
  - Product use issue [Unknown]
